FAERS Safety Report 14877329 (Version 1)
Quarter: 2018Q2

REPORT INFORMATION
  Report Type: Spontaneous
  Country: US (occurrence: US)
  Receive Date: 20180510
  Receipt Date: 20180510
  Transmission Date: 20180711
  Serious: No
  Sender: FDA-Public Use
  Company Number: US-JNJFOC-20180423054

PATIENT
  Age: 69 Year
  Sex: Female
  Weight: 78.93 kg

DRUGS (4)
  1. TYLENOL 8 HR ARTHRITIS PAIN [Suspect]
     Active Substance: ACETAMINOPHEN
     Indication: FRACTURE PAIN
     Dosage: TAKING 5-6 DAILY
     Route: 065
     Dates: start: 20180416, end: 20180416
  2. TYLENOL 8 HR ARTHRITIS PAIN [Suspect]
     Active Substance: ACETAMINOPHEN
     Indication: FRACTURE PAIN
     Dosage: 3 TABLETS OF 650 MG, DAILY
     Route: 065
     Dates: start: 20180411, end: 201804
  3. TYLENOL 8 HR ARTHRITIS PAIN [Suspect]
     Active Substance: ACETAMINOPHEN
     Indication: FRACTURE PAIN
     Dosage: TAKING 5-6 DAILY, TOOK 5 ON SATURDAY AND SUNDAY
     Route: 065
     Dates: start: 20180413, end: 20180415
  4. PREDNISONE. [Concomitant]
     Active Substance: PREDNISONE
     Indication: RIB FRACTURE
     Route: 065

REACTIONS (3)
  - Product use in unapproved indication [Unknown]
  - Off label use [Unknown]
  - Chest discomfort [Not Recovered/Not Resolved]

NARRATIVE: CASE EVENT DATE: 20180411
